FAERS Safety Report 7456765-8 (Version None)
Quarter: 2011Q2

REPORT INFORMATION
  Report Type: 
  Country: None (occurrence: None)
  Receive Date: 20110504
  Receipt Date: 20110425
  Transmission Date: 20111010
  Serious: Yes (Hospitalization)
  Sender: FDA-Public Use
  Company Number: MY-BRISTOL-MYERS SQUIBB COMPANY-15710270

PATIENT
  Age: 38 Year
  Sex: Female

DRUGS (5)
  1. RISPERDAL [Concomitant]
     Dosage: TABLET
     Dates: start: 20110418
  2. RANITIDINE [Suspect]
     Indication: GASTRITIS
     Route: 048
     Dates: start: 20110324
  3. TRIHEXYPHENIDYL [Concomitant]
     Dosage: TABLET
     Dates: start: 20110323
  4. ZOLPIDEM [Concomitant]
     Dosage: TABLET
     Dates: start: 20110411
  5. ABILIFY [Suspect]
     Indication: SCHIZOPHRENIA
     Route: 048
     Dates: start: 20110418

REACTIONS (1)
  - PSYCHOTIC DISORDER [None]
